FAERS Safety Report 5766012-0 (Version None)
Quarter: 2008Q2

REPORT INFORMATION
  Report Type: 
  Country: None (occurrence: None)
  Receive Date: 20080611
  Receipt Date: 20080530
  Transmission Date: 20081010
  Serious: Yes (Other)
  Sender: FDA-Public Use
  Company Number: JP-PFIZER INC-2008046259

PATIENT
  Age: 68 Year
  Sex: Female

DRUGS (3)
  1. AROMASIN [Suspect]
     Route: 048
     Dates: start: 20060831, end: 20080604
  2. CRESTOR [Concomitant]
     Route: 048
  3. MYSLEE [Concomitant]
     Route: 048

REACTIONS (1)
  - CEREBRAL INFARCTION [None]
